FAERS Safety Report 10378242 (Version 5)
Quarter: 2015Q2

REPORT INFORMATION
  Report Type: Spontaneous
  Country: DK (occurrence: DK)
  Receive Date: 20140812
  Receipt Date: 20150601
  Transmission Date: 20150821
  Serious: Yes (Hospitalization, Disabling)
  Sender: FDA-Public Use
  Company Number: DK-ASTRAZENECA-2014SE57140

PATIENT
  Age: 21323 Day
  Sex: Female

DRUGS (3)
  1. ARIXTRA [Suspect]
     Active Substance: FONDAPARINUX SODIUM
     Indication: THROMBOSIS PROPHYLAXIS
     Route: 065
     Dates: start: 20130418
  2. MAGNYL [Suspect]
     Active Substance: ASPIRIN
     Indication: THROMBOSIS PROPHYLAXIS
     Route: 065
     Dates: start: 20130418
  3. BRILIQUE [Suspect]
     Active Substance: TICAGRELOR
     Indication: THROMBOSIS PROPHYLAXIS
     Dosage: 90 MG
     Route: 048
     Dates: start: 20130418

REACTIONS (10)
  - Urinary incontinence [Not Recovered/Not Resolved]
  - Muscular weakness [Unknown]
  - Urinary retention [Not Recovered/Not Resolved]
  - Joint range of motion decreased [Unknown]
  - Diplegia [Recovered/Resolved with Sequelae]
  - Spinal cord haematoma [Recovered/Resolved with Sequelae]
  - Gait disturbance [Not Recovered/Not Resolved]
  - Back pain [Unknown]
  - Faecal incontinence [Unknown]
  - Balance disorder [Not Recovered/Not Resolved]

NARRATIVE: CASE EVENT DATE: 20130419
